FAERS Safety Report 8061183-8 (Version None)
Quarter: 2012Q1

REPORT INFORMATION
  Report Type: 
  Country: None (occurrence: None)
  Receive Date: 20120120
  Receipt Date: 20110628
  Transmission Date: 20120608
  Serious: No
  Sender: FDA-Public Use
  Company Number: US-ALLERGAN-1108763US

PATIENT
  Age: 78 Year
  Sex: Female

DRUGS (2)
  1. A COUPLE OF OTC EYE DROPS [Concomitant]
     Indication: DRY EYE
     Dosage: UNK
     Route: 047
  2. RESTASIS [Suspect]
     Indication: DRY EYE
     Dosage: 1 GTT, QHS
     Route: 047
     Dates: start: 20110528, end: 20110601

REACTIONS (3)
  - VITREOUS FLOATERS [None]
  - EYE IRRITATION [None]
  - DRUG INEFFECTIVE [None]
